FAERS Safety Report 6335154-3 (Version None)
Quarter: 2009Q3

REPORT INFORMATION
  Report Type: 
  Country: None (occurrence: None)
  Receive Date: 20090828
  Receipt Date: 20090828
  Transmission Date: 20100115
  Serious: No
  Sender: FDA-Public Use
  Company Number: None

PATIENT
  Sex: Female
  Weight: 91.173 kg

DRUGS (1)
  1. GELNIQUE [Suspect]
     Indication: POLLAKIURIA
     Dosage: 10% DAILY ON SKIN
     Route: 062

REACTIONS (1)
  - DRUG INEFFECTIVE [None]
